FAERS Safety Report 6290631-9 (Version None)
Quarter: 2009Q3

REPORT INFORMATION
  Report Type: 
  Country: None (occurrence: None)
  Receive Date: 20090730
  Receipt Date: 20090720
  Transmission Date: 20100115
  Serious: Yes (Hospitalization)
  Sender: FDA-Public Use
  Company Number: PHHY2009DE25650

PATIENT
  Sex: Female

DRUGS (7)
  1. EXELON [Suspect]
     Dosage: 4.6 MG/24H
     Route: 062
     Dates: start: 20090428, end: 20090428
  2. EXELON [Suspect]
     Dosage: 3 MG/DAY
     Route: 048
     Dates: start: 20090428, end: 20090430
  3. DOCITON [Suspect]
     Dosage: 80 MG/DAY
     Route: 048
  4. REMERGIL [Suspect]
     Dosage: 15 MG/DAY
     Route: 048
     Dates: start: 20090422, end: 20090428
  5. REMERGIL [Suspect]
     Dosage: 30 MG/DAY
     Route: 048
     Dates: start: 20090429, end: 20090504
  6. REMERGIL [Suspect]
     Dosage: 15 MG/DAY
     Route: 048
     Dates: start: 20090505
  7. LEVOTHYROXINE SODIUM [Concomitant]
     Dosage: 75 UG/DAY
     Route: 048

REACTIONS (1)
  - HYPERTENSIVE CRISIS [None]
